FAERS Safety Report 16810570 (Version 2)
Quarter: 2025Q3

REPORT INFORMATION
  Report Type: Spontaneous
  Country: EU (occurrence: EU)
  Receive Date: 20190916
  Receipt Date: 20250714
  Transmission Date: 20251021
  Serious: Yes (Hospitalization)
  Sender: MYLAN
  Company Number: None

PATIENT
  Age: 23 Year
  Sex: Male

DRUGS (4)
  1. LOPERAMIDE [Suspect]
     Active Substance: LOPERAMIDE
     Indication: Product used for unknown indication
     Dates: start: 20150401, end: 20150401
  2. LOPERAMIDE [Suspect]
     Active Substance: LOPERAMIDE
     Route: 048
     Dates: start: 20150401, end: 20150401
  3. LOPERAMIDE [Suspect]
     Active Substance: LOPERAMIDE
     Route: 048
     Dates: start: 20150401, end: 20150401
  4. LOPERAMIDE [Suspect]
     Active Substance: LOPERAMIDE
     Dates: start: 20150401, end: 20150401

REACTIONS (11)
  - Drug abuse [Unknown]
  - Intentional overdose [Unknown]
  - Cardiogenic shock [Unknown]
  - Hypoxia [Unknown]
  - Suicide attempt [Unknown]
  - Electrocardiogram QRS complex prolonged [Unknown]
  - Hypotension [Unknown]
  - Depressed level of consciousness [Unknown]
  - Miosis [Unknown]
  - Somnolence [Unknown]
  - Electrocardiogram QT prolonged [Unknown]

NARRATIVE: CASE EVENT DATE: 20170401
